FAERS Safety Report 9531571 (Version 1)
Quarter: 2013Q3

REPORT INFORMATION
  Report Type: Spontaneous
  Country: US (occurrence: None)
  Receive Date: 20130917
  Receipt Date: 20130917
  Transmission Date: 20140515
  Serious: Yes (Disabling)
  Sender: FDA-Public Use
  Company Number: None

PATIENT
  Age: 17 Year
  Sex: Female
  Weight: 35.83 kg

DRUGS (1)
  1. FEMCON FE [Suspect]

REACTIONS (2)
  - Convulsion [None]
  - Mitochondrial cytopathy [None]
